FAERS Safety Report 23408264 (Version 1)
Quarter: 2024Q1

REPORT INFORMATION
  Report Type: Spontaneous
  Country: US (occurrence: US)
  Receive Date: 20240117
  Receipt Date: 20240117
  Transmission Date: 20240410
  Serious: No
  Sender: FDA-Public Use
  Company Number: US-002147023-NVSC2023US144589

PATIENT
  Sex: Male

DRUGS (5)
  1. CARVEDILOL [Suspect]
     Active Substance: CARVEDILOL
     Indication: Product used for unknown indication
     Dosage: UNK
     Route: 065
  2. ENTRESTO [Suspect]
     Active Substance: SACUBITRIL\VALSARTAN
     Indication: Product used for unknown indication
     Dosage: 24/26MG 1 BID
     Route: 065
     Dates: start: 202303
  3. LISINOPRIL [Suspect]
     Active Substance: LISINOPRIL
     Indication: Product used for unknown indication
     Dosage: UNK
     Route: 065
  4. METFORMIN [Suspect]
     Active Substance: METFORMIN HYDROCHLORIDE
     Indication: Product used for unknown indication
     Dosage: UNK MG
     Route: 065
  5. AMITRIPTYLINE [Concomitant]
     Active Substance: AMITRIPTYLINE
     Indication: Product used for unknown indication
     Route: 065

REACTIONS (18)
  - Restlessness [Unknown]
  - Renal disorder [Unknown]
  - Cardiac disorder [Unknown]
  - Fatigue [Unknown]
  - Skin ulcer [Unknown]
  - Nail bed bleeding [Unknown]
  - Ingrowing nail [Unknown]
  - Sleep apnoea syndrome [Unknown]
  - Heart rate decreased [Unknown]
  - Weight decreased [Unknown]
  - Contraindicated product administered [Unknown]
  - Pain in extremity [Unknown]
  - Arthralgia [Unknown]
  - Urinary tract infection [Unknown]
  - Limb discomfort [Unknown]
  - Increased need for sleep [Unknown]
  - Glycosylated haemoglobin increased [Unknown]
  - Wrong technique in product usage process [Unknown]
